FAERS Safety Report 17638558 (Version 1)
Quarter: 2020Q2

REPORT INFORMATION
  Report Type: Spontaneous
  Country: US (occurrence: US)
  Receive Date: 20200407
  Receipt Date: 20200407
  Transmission Date: 20200713
  Serious: Yes (Life-Threatening, Hospitalization)
  Sender: FDA-Public Use
  Company Number: None

PATIENT
  Age: 69 Year
  Sex: Male

DRUGS (2)
  1. PERFLUTREN  (PERFLUTREN LIPID MICROSPHERE INJ, 2ML) [Suspect]
     Active Substance: PERFLUTREN
     Indication: VASCULAR OPERATION
     Dates: start: 20200225, end: 20200225
  2. PERFLUTREN  (PERFLUTREN LIPID MICROSPHERE INJ, 2ML) [Suspect]
     Active Substance: PERFLUTREN
     Indication: CARDIAC OPERATION
     Dates: start: 20200225, end: 20200225

REACTIONS (3)
  - Cardio-respiratory arrest [None]
  - Acute coronary syndrome [None]
  - Anaphylactic reaction [None]

NARRATIVE: CASE EVENT DATE: 20200225
